FAERS Safety Report 5112731-9 (Version None)
Quarter: 2006Q3

REPORT INFORMATION
  Report Type: 
  Country: None (occurrence: None)
  Receive Date: 20060922
  Receipt Date: 20060817
  Transmission Date: 20061208
  Serious: Yes (Other)
  Sender: FDA-Public Use
  Company Number: DE-GLAXOSMITHKLINE-D0050688A

PATIENT
  Age: 46 Year
  Sex: Female

DRUGS (3)
  1. VIANI [Suspect]
     Indication: ASTHMA
     Route: 055
     Dates: start: 19960101
  2. YASMIN [Concomitant]
     Route: 048
  3. HOMEOPATHIC MEDICATION [Concomitant]
     Route: 048

REACTIONS (3)
  - ASTHMA [None]
  - DISABILITY [None]
  - DYSPNOEA [None]
